FAERS Safety Report 24162561 (Version 1)
Quarter: 2024Q3

REPORT INFORMATION
  Report Type: Report from Study
  Country: US (occurrence: US)
  Receive Date: 20240801
  Receipt Date: 20240801
  Transmission Date: 20241017
  Serious: Yes (Hospitalization, Other)
  Sender: OTSUKA
  Company Number: US-OTSUKA-2023_025272

PATIENT
  Sex: Male

DRUGS (1)
  1. TOLVAPTAN [Suspect]
     Active Substance: TOLVAPTAN
     Indication: Congenital cystic kidney disease
     Dosage: UNK
     Route: 065
     Dates: start: 20220421

REACTIONS (6)
  - Gastric infection [Unknown]
  - Medical procedure [Unknown]
  - Diarrhoea [Unknown]
  - Muscle strain [Unknown]
  - Gastrointestinal disorder [Unknown]
  - Polydipsia [Unknown]

NARRATIVE: CASE EVENT DATE: 20230925
